FAERS Safety Report 21833207 (Version 1)
Quarter: 2023Q1

REPORT INFORMATION
  Report Type: Spontaneous
  Country: US (occurrence: US)
  Receive Date: 20230106
  Receipt Date: 20230106
  Transmission Date: 20230417
  Serious: Yes (Hospitalization, Other)
  Sender: FDA-Public Use
  Company Number: US-MALLINCKRODT-T202206756

PATIENT
  Sex: Male

DRUGS (2)
  1. H.P. ACTHAR [Suspect]
     Active Substance: CORTICOTROPIN
     Indication: Keratitis
     Dosage: 1 MILLILITER (80 UNITS), TWICE A WEEK
     Route: 058
     Dates: start: 202105
  2. H.P. ACTHAR [Suspect]
     Active Substance: CORTICOTROPIN
     Dosage: 40 UNITS TWICE A WEEK
     Route: 065
     Dates: start: 20210518, end: 2022

REACTIONS (3)
  - Haematological infection [Unknown]
  - Skin abrasion [Unknown]
  - Muscular weakness [Unknown]

NARRATIVE: CASE EVENT DATE: 20220101
